FAERS Safety Report 4433912-3 (Version None)
Quarter: 2004Q3

REPORT INFORMATION
  Report Type: 
  Country: None (occurrence: None)
  Receive Date: 20040824
  Receipt Date: 20040824
  Transmission Date: 20050211
  Serious: Yes (Life-Threatening, Hospitalization, Disabling)
  Sender: FDA-Public Use
  Company Number: None

PATIENT
  Age: 50 Year
  Sex: Female
  Weight: 55.7924 kg

DRUGS (6)
  1. AVASTIN [Suspect]
     Indication: GASTROINTESTINAL CARCINOMA
     Dosage: 5MG/KG GENENTECH Q2WEEK INTRAVENOUS
     Route: 042
     Dates: start: 20040802, end: 20040816
  2. KYTRIL [Concomitant]
  3. SCOPOLAMINE PATCH [Concomitant]
  4. IMODIUM [Concomitant]
  5. OXYCODONE HCL [Concomitant]
  6. FOLFOX [Concomitant]

REACTIONS (9)
  - ABDOMINAL PAIN [None]
  - DEEP VEIN THROMBOSIS [None]
  - EJECTION FRACTION DECREASED [None]
  - HYPOTENSION [None]
  - POST PROCEDURAL DIARRHOEA [None]
  - PULMONARY EMBOLISM [None]
  - RESPIRATORY ARREST [None]
  - VENTRICULAR FAILURE [None]
  - VENTRICULAR FIBRILLATION [None]
